FAERS Safety Report 10273509 (Version 3)
Quarter: 2015Q3

REPORT INFORMATION
  Report Type: Report from Study
  Country: BR (occurrence: BR)
  Receive Date: 20140702
  Receipt Date: 20150908
  Transmission Date: 20151125
  Serious: Yes (Other)
  Sender: FDA-Public Use
  Company Number: BR-ABBVIE-14P-020-1253760-00

PATIENT
  Sex: Female
  Weight: 50 kg

DRUGS (6)
  1. CITALOPRAM [Concomitant]
     Active Substance: CITALOPRAM HYDROBROMIDE
     Indication: NERVOUSNESS
     Dosage: IN THE MORNING
     Route: 048
     Dates: start: 2014
  2. DEPAKOTE ER [Suspect]
     Active Substance: DIVALPROEX SODIUM
     Indication: SEIZURE
     Dosage: 500 MG; ADMINISTERED IN THE MORNING 07:00 AM
     Route: 048
  3. NAPRIX A [Concomitant]
     Indication: HEADACHE
     Route: 048
     Dates: start: 2012
  4. CARBAMAZEPINE. [Concomitant]
     Active Substance: CARBAMAZEPINE
     Indication: EPILEPSY
  5. DEPAKOTE ER [Suspect]
     Active Substance: DIVALPROEX SODIUM
     Dosage: 250MG IN MORNING 10:00 AM
     Route: 048
     Dates: start: 2014
  6. HIDANTAL [Concomitant]
     Active Substance: PHENYTOIN SODIUM
     Indication: SEIZURE
     Route: 048

REACTIONS (1)
  - Therapeutic response decreased [Unknown]
